FAERS Safety Report 5118579-3 (Version None)
Quarter: 2006Q3

REPORT INFORMATION
  Report Type: 
  Country: None (occurrence: None)
  Receive Date: 20060927
  Receipt Date: 20060919
  Transmission Date: 20061208
  Serious: Yes (Hospitalization)
  Sender: FDA-Public Use
  Company Number: GXKR2006CZ05780

PATIENT
  Age: 7 Year
  Sex: Female

DRUGS (2)
  1. MCP HEXAL (NGX) (METOCLOPRAMIDE) TABLET, 10MG [Suspect]
     Indication: GASTROOESOPHAGITIS
     Dosage: 5 MG, TID, ORAL
     Route: 048
     Dates: start: 20060710, end: 20060716
  2. UROSFALK (URSODEOXYCHOLIC ACID) [Concomitant]

REACTIONS (6)
  - BALANCE DISORDER [None]
  - FEELING HOT AND COLD [None]
  - FLUSHING [None]
  - VERTIGO [None]
  - VISUAL ACUITY REDUCED [None]
  - VISUAL DISTURBANCE [None]
